FAERS Safety Report 19075121 (Version 1)
Quarter: 2021Q1

REPORT INFORMATION
  Report Type: Spontaneous
  Country: US (occurrence: US)
  Receive Date: 20210330
  Receipt Date: 20210330
  Transmission Date: 20210420
  Serious: No
  Sender: FDA-Public Use
  Company Number: US-ROCHE-2554125

PATIENT
  Age: 79 Year
  Sex: Female
  Weight: 60.38 kg

DRUGS (2)
  1. ERIVEDGE [Suspect]
     Active Substance: VISMODEGIB
     Dosage: PRODUCT NUMBER PROVIDED O8E?3?04 ;ONGOING: YES
     Route: 048
     Dates: start: 20200201
  2. ERIVEDGE [Suspect]
     Active Substance: VISMODEGIB
     Indication: BASAL CELL CARCINOMA
     Dosage: PRODUCT NUMBER NDC 50242?0140?01  O8E?3?04
     Route: 048
     Dates: start: 20200101

REACTIONS (4)
  - Medication error [Unknown]
  - Ageusia [Not Recovered/Not Resolved]
  - Off label use [Unknown]
  - Intentional product misuse [Unknown]

NARRATIVE: CASE EVENT DATE: 202002
